FAERS Safety Report 23891573 (Version 1)
Quarter: 2024Q2

REPORT INFORMATION
  Report Type: Spontaneous
  Country: CN (occurrence: CN)
  Receive Date: 20240524
  Receipt Date: 20240524
  Transmission Date: 20240715
  Serious: Yes (Other)
  Sender: FDA-Public Use
  Company Number: CN-JNJFOC-20240550876

PATIENT
  Age: 66 Year
  Sex: Male
  Weight: 98 kg

DRUGS (1)
  1. IMBRUVICA [Suspect]
     Active Substance: IBRUTINIB
     Indication: Mantle cell lymphoma recurrent
     Route: 048
     Dates: start: 20240310, end: 20240322

REACTIONS (2)
  - White blood cell count increased [Recovering/Resolving]
  - Lymphocyte count increased [Recovering/Resolving]

NARRATIVE: CASE EVENT DATE: 20240315
